FAERS Safety Report 8123308-5 (Version None)
Quarter: 2012Q1

REPORT INFORMATION
  Report Type: 
  Country: None (occurrence: None)
  Receive Date: 20120208
  Receipt Date: 20111031
  Transmission Date: 20120608
  Serious: Yes (Hospitalization)
  Sender: FDA-Public Use
  Company Number: US-ROCHE-1022306

PATIENT
  Sex: Female
  Weight: 73.6 kg

DRUGS (11)
  1. RANIBIZUMAB [Suspect]
     Indication: DIABETIC RETINAL OEDEMA
     Dosage: ONCE PER MOS
     Route: 050
     Dates: start: 20110623
  2. DOXAZOSIN [Concomitant]
     Route: 048
     Dates: start: 20100101
  3. AMLODIPINE [Concomitant]
     Indication: HYPERTENSION
     Route: 048
     Dates: start: 20100101
  4. HUMALOG [Concomitant]
     Indication: DIABETES MELLITUS
     Route: 058
  5. SODIUM BICARBONATE [Concomitant]
     Indication: GASTROOESOPHAGEAL REFLUX DISEASE
     Route: 048
     Dates: start: 20100101
  6. LANTUS [Concomitant]
     Indication: DIABETES MELLITUS
     Dosage: 10 UNITS AT BED
     Route: 058
     Dates: start: 20100101
  7. SIMVASTATIN [Concomitant]
     Indication: BLOOD CHOLESTEROL
     Dosage: QHS
     Route: 048
  8. CLONIDINE [Concomitant]
     Indication: HYPERTENSION
     Route: 048
     Dates: start: 20110401
  9. FUROSEMIDE [Concomitant]
     Route: 048
     Dates: start: 20100101
  10. ASPIRIN [Concomitant]
     Indication: ANTICOAGULANT THERAPY
     Route: 048
     Dates: start: 20100101
  11. CRESTOR [Concomitant]
     Indication: BLOOD CHOLESTEROL
     Dates: start: 20100101

REACTIONS (1)
  - PNEUMONIA [None]
